FAERS Safety Report 5164462-7 (Version None)
Quarter: 2006Q4

REPORT INFORMATION
  Report Type: 
  Country: None (occurrence: None)
  Receive Date: 20061205
  Receipt Date: 20061121
  Transmission Date: 20070319
  Serious: Yes (Other)
  Sender: FDA-Public Use
  Company Number: FR-NOVOPROD-258874

PATIENT
  Sex: Female
  Weight: 58 kg

DRUGS (3)
  1. LEVEMIR [Suspect]
     Indication: DIABETES MELLITUS
     Dosage: 24 IU, 18 - 0 - 6
     Route: 058
     Dates: start: 20051118
  2. NOVORAPID FLEXPEN [Suspect]
     Indication: DIABETES MELLITUS
     Dosage: 24 IU, 8 - 6 - 10
     Route: 058
  3. VITAMIN B12                        /00056201/ [Concomitant]
     Dosage: 1000 MICROGRAM MONTHLY
     Route: 030
     Dates: start: 20030101

REACTIONS (4)
  - ACUTE PULMONARY OEDEMA [None]
  - AGITATION [None]
  - CARDIAC FAILURE [None]
  - HYPOGLYCAEMIA [None]
